FAERS Safety Report 16478482 (Version 9)
Quarter: 2022Q3

REPORT INFORMATION
  Report Type: Spontaneous
  Country: US (occurrence: US)
  Receive Date: 20190626
  Receipt Date: 20220728
  Transmission Date: 20221027
  Serious: No
  Sender: FDA-Public Use
  Company Number: US-PFIZER INC-2019269876

PATIENT
  Age: 41 Year
  Sex: Female

DRUGS (4)
  1. IBRANCE [Suspect]
     Active Substance: PALBOCICLIB
     Indication: Breast cancer metastatic
     Dosage: 125 MG, UNK
  2. IBRANCE [Suspect]
     Active Substance: PALBOCICLIB
     Dosage: 75 MG, CYCLIC (3 WEEKS ON 1 WEEK OFF)
     Dates: start: 20170901
  3. IBRANCE [Suspect]
     Active Substance: PALBOCICLIB
     Dosage: UNK
     Dates: start: 202109
  4. LETROZOLE [Concomitant]
     Active Substance: LETROZOLE
     Dosage: UNK

REACTIONS (20)
  - COVID-19 [Unknown]
  - Pain [Unknown]
  - Malaise [Unknown]
  - Bone lesion [Not Recovered/Not Resolved]
  - Nasopharyngitis [Recovering/Resolving]
  - Fatigue [Unknown]
  - Alopecia [Unknown]
  - Weight decreased [Unknown]
  - Fall [Unknown]
  - Joint injury [Unknown]
  - Gait disturbance [Unknown]
  - White blood cell count decreased [Unknown]
  - Mood altered [Unknown]
  - Insomnia [Unknown]
  - Arthralgia [Unknown]
  - Arthritis [Unknown]
  - Malaise [Unknown]
  - Sinusitis [Unknown]
  - Psychiatric symptom [Unknown]
  - Feeling abnormal [Unknown]

NARRATIVE: CASE EVENT DATE: 20200722
